FAERS Safety Report 10428320 (Version 1)
Quarter: 2014Q3

REPORT INFORMATION
  Report Type: Spontaneous
  Country: US (occurrence: US)
  Receive Date: 20140903
  Receipt Date: 20140903
  Transmission Date: 20150326
  Serious: Yes (Other)
  Sender: FDA-Public Use
  Company Number: US-CUBIST PHARMACEUTICAL, INC.-2014CBST001229

PATIENT

DRUGS (6)
  1. CUBICIN [Suspect]
     Active Substance: DAPTOMYCIN
     Indication: STAPHYLOCOCCAL INFECTION
     Dosage: 650 MG (2-MINUTE IV PUSH), Q48H
     Route: 040
  2. CUBICIN [Suspect]
     Active Substance: DAPTOMYCIN
     Dosage: 6 MG/KG 30-MINUTE INFUSION, Q48H
     Route: 042
  3. CUBICIN [Suspect]
     Active Substance: DAPTOMYCIN
     Dosage: 650 MG 30-MINUTE INFUSION, Q48H
     Route: 042
  4. CUBICIN [Suspect]
     Active Substance: DAPTOMYCIN
     Dosage: 6 MG/KG (2-MINUTE IV PUSH), Q48H
     Route: 040
  5. CUBICIN [Suspect]
     Active Substance: DAPTOMYCIN
     Dosage: 650 MG, 40 MIN INFUSION (50ML DILUTION), Q48H
     Route: 042
  6. CUBICIN [Suspect]
     Active Substance: DAPTOMYCIN
     Dosage: 6 MG/KG, 40 MIN INFUSION (50ML DILUTION), Q48H
     Route: 042

REACTIONS (1)
  - Red man syndrome [Recovered/Resolved]
